FAERS Safety Report 8174036 (Version 3)
Quarter: 2013Q2

REPORT INFORMATION
  Report Type: Spontaneous
  Country: MX (occurrence: MX)
  Receive Date: 20111010
  Receipt Date: 20130405
  Transmission Date: 20140414
  Serious: Yes (Death, Other)
  Sender: FDA-Public Use
  Company Number: PHHY2011MX88962

PATIENT
  Age: 59 Year
  Sex: Male

DRUGS (2)
  1. RASILEZ HCT [Suspect]
     Indication: HYPERTENSION
     Dosage: 1 DF (300MG ALIS AND 12.5MG HCT), DAILY
     Route: 048
     Dates: start: 20110711, end: 20110929
  2. NIFEDIPINE [Concomitant]
     Dosage: 1 TABLET DAILY

REACTIONS (3)
  - Cardiac arrest [Fatal]
  - Renal failure [Unknown]
  - Anaemia [Unknown]
